FAERS Safety Report 24777308 (Version 1)
Quarter: 2024Q4

REPORT INFORMATION
  Report Type: Spontaneous
  Country: DE (occurrence: DE)
  Receive Date: 20241226
  Receipt Date: 20241226
  Transmission Date: 20250115
  Serious: Yes (Hospitalization)
  Sender: MYLAN
  Company Number: DE-MYLANLABS-2024M1113540

PATIENT
  Age: 38 Year
  Sex: Male

DRUGS (5)
  1. ACYCLOVIR [Suspect]
     Active Substance: ACYCLOVIR
     Indication: Genital ulceration
     Dosage: UNK
     Route: 048
  2. ACYCLOVIR [Suspect]
     Active Substance: ACYCLOVIR
     Indication: Herpes simplex
  3. FOSCARNET [Suspect]
     Active Substance: FOSCARNET
     Indication: Genital ulceration
     Dosage: UNK
     Route: 042
  4. FOSCARNET [Suspect]
     Active Substance: FOSCARNET
     Indication: Herpes simplex
  5. BICTEGRAVIR\EMTRICITABINE\TENOFOVIR ALAFENAMIDE [Concomitant]
     Active Substance: BICTEGRAVIR\EMTRICITABINE\TENOFOVIR ALAFENAMIDE
     Indication: HIV infection
     Dosage: UNK
     Route: 065

REACTIONS (1)
  - Pathogen resistance [Unknown]
